FAERS Safety Report 19694307 (Version 3)
Quarter: 2023Q2

REPORT INFORMATION
  Report Type: Report from Study
  Country: ES (occurrence: ES)
  Receive Date: 20210812
  Receipt Date: 20230518
  Transmission Date: 20230721
  Serious: Yes (Hospitalization)
  Sender: FDA-Public Use
  Company Number: ES-ROCHE-2733058

PATIENT
  Age: 32 Year
  Sex: Female
  Weight: 54.6 kg

DRUGS (14)
  1. TRASTUZUMAB [Suspect]
     Active Substance: TRASTUZUMAB
     Indication: Breast cancer
     Dosage: 437MG (LOADING DOSE, DOSE: 8 MG/KGLAST DOSE
     Route: 042
     Dates: start: 20201201
  2. TRASTUZUMAB [Suspect]
     Active Substance: TRASTUZUMAB
     Indication: HER2 positive breast cancer
     Dosage: DATE OF MOST RECENT DOSE PRIOR TO SAE: 01-DEC-2020
     Route: 042
  3. CARBOPLATIN [Suspect]
     Active Substance: CARBOPLATIN
     Indication: Breast cancer
     Dosage: DATE OF MOST RECENT DOSE PRIOR TO SAE:08-DEC-2020
     Route: 042
     Dates: start: 20201201
  4. CARBOPLATIN [Suspect]
     Active Substance: CARBOPLATIN
     Indication: HER2 positive breast cancer
     Dosage: 230 MILLIGRAM
     Route: 042
     Dates: start: 20201208
  5. PACLITAXEL [Suspect]
     Active Substance: PACLITAXEL
     Indication: Breast cancer
     Dosage: 139 MG (DATE OF MOST RECENT DOSE OF PACLITAXEL
     Route: 042
     Dates: start: 20201201
  6. PACLITAXEL [Suspect]
     Active Substance: PACLITAXEL
     Indication: HER2 positive breast cancer
     Dosage: 90 MILLIGRAM/SQ. METER (08-DEC-2020)
     Route: 042
     Dates: start: 20201208
  7. PERTUZUMAB [Suspect]
     Active Substance: PERTUZUMAB
     Indication: Breast cancer
     Dosage: 840 MG (LOADING DOSE MOST RECENT DOSE ON SAME DAY)
     Route: 042
     Dates: start: 20201201
  8. PERTUZUMAB [Suspect]
     Active Substance: PERTUZUMAB
     Indication: HER2 positive breast cancer
     Dosage: 420 MILLIGRAM (MAINTAINANCE DOSE)
     Route: 042
     Dates: start: 20201201
  9. ONDANSETRON [Concomitant]
     Active Substance: ONDANSETRON
     Dosage: 4 MILLIGRAM, Q8H
     Route: 048
     Dates: start: 20201215, end: 20201215
  10. MORPHINE [Concomitant]
     Active Substance: MORPHINE
     Dosage: 10 MILLIGRAM, Q4H
     Route: 058
     Dates: start: 20201213, end: 20201215
  11. ACETAMINOPHEN [Concomitant]
     Active Substance: ACETAMINOPHEN
     Dosage: 500 MILLIGRAM, Q8H
     Route: 048
     Dates: start: 20201215, end: 20201215
  12. DEXAMETHASONE [Concomitant]
     Active Substance: DEXAMETHASONE
     Dosage: 4 MILLIGRAM, QD
     Route: 065
     Dates: start: 20201215, end: 20201215
  13. METOCLOPRAMIDE [Concomitant]
     Active Substance: METOCLOPRAMIDE
     Dosage: 10 MILLIGRAM, Q8H
     Route: 065
     Dates: start: 20201215, end: 20201215
  14. Nolotil [Concomitant]
     Dosage: 575 MILLIGRAM, Q8H
     Route: 048
     Dates: start: 20201215, end: 20201215

REACTIONS (3)
  - Subileus [Recovered/Resolved]
  - Intestinal obstruction [Recovered/Resolved]
  - Abdominal pain [Recovered/Resolved]

NARRATIVE: CASE EVENT DATE: 20201211
